FAERS Safety Report 7228258-4 (Version None)
Quarter: 2011Q1

REPORT INFORMATION
  Report Type: 
  Country: None (occurrence: None)
  Receive Date: 20110114
  Receipt Date: 20110110
  Transmission Date: 20110831
  Serious: Yes (Other)
  Sender: FDA-Public Use
  Company Number: CA-PFIZER INC-2010145879

PATIENT
  Age: 55 Year
  Sex: Female
  Weight: 75.28 kg

DRUGS (1)
  1. LYRICA [Suspect]
     Indication: PAIN
     Dosage: 150 MG, 2X/DAY
     Route: 048
     Dates: start: 20090801

REACTIONS (1)
  - CORNEAL DYSTROPHY [None]
